FAERS Safety Report 10677247 (Version 2)
Quarter: 2014Q4

REPORT INFORMATION
  Report Type: Spontaneous
  Country: US (occurrence: US)
  Receive Date: 20141226
  Receipt Date: 20141226
  Transmission Date: 20150529
  Serious: No
  Sender: FDA-Public Use
  Company Number: US-BAUSCH-SYM-2013-12042

PATIENT
  Sex: Female

DRUGS (1)
  1. XENAZINE [Suspect]
     Active Substance: TETRABENAZINE
     Indication: HUNTINGTON^S DISEASE
     Dosage: HALF OF 25 MG TABLET 2 TIMES DAILY
     Route: 048
     Dates: start: 20131009

REACTIONS (4)
  - Anxiety [Recovered/Resolved]
  - Poor quality sleep [Recovered/Resolved]
  - Restlessness [Recovered/Resolved]
  - Blood pressure increased [Recovered/Resolved]
